FAERS Safety Report 5919663-4 (Version None)
Quarter: 2008Q3

REPORT INFORMATION
  Report Type: 
  Country: None (occurrence: None)
  Receive Date: 20080909
  Receipt Date: 20080701
  Transmission Date: 20090109
  Serious: Yes (Other)
  Sender: FDA-Public Use
  Company Number: 163-20785-08051631

PATIENT
  Age: 58 Year
  Sex: Male
  Weight: 79.8331 kg

DRUGS (3)
  1. THALOMID [Suspect]
     Indication: PROSTATE CANCER
     Dosage: SEE IMAGE
     Route: 048
     Dates: start: 20080321, end: 20080526
  2. THALOMID [Suspect]
     Indication: PROSTATE CANCER
     Dosage: SEE IMAGE
     Route: 048
     Dates: start: 20080101
  3. DOXIL [Suspect]
     Indication: PROSTATE CANCER
     Dosage: 40 MG/M2, EVERY 28 DAYS, INTRAVENOUS
     Route: 042

REACTIONS (2)
  - ARTHRALGIA [None]
  - FALL [None]
